FAERS Safety Report 18379292 (Version 1)
Quarter: 2020Q4

REPORT INFORMATION
  Report Type: Spontaneous
  Country: FR (occurrence: FR)
  Receive Date: 20201013
  Receipt Date: 20201013
  Transmission Date: 20210114
  Serious: Yes (Hospitalization)
  Sender: FDA-Public Use
  Company Number: FR-009507513-2010FRA003126

PATIENT
  Age: 51 Year
  Sex: Male
  Weight: 218 kg

DRUGS (1)
  1. BETAMETHASONE DIPROPIONATE. [Suspect]
     Active Substance: BETAMETHASONE DIPROPIONATE
     Indication: FUNGAL SKIN INFECTION
     Dosage: 22 DOSAGE FORM, QM (1 MONTH)
     Route: 003
     Dates: start: 202003, end: 20200824

REACTIONS (5)
  - Acetonaemia [Recovered/Resolved]
  - Adrenal insufficiency [Recovering/Resolving]
  - Hypokalaemia [Recovered/Resolved]
  - Hyperglycinaemia [Recovered/Resolved]
  - Metabolic alkalosis [Recovered/Resolved]

NARRATIVE: CASE EVENT DATE: 20200824
